FAERS Safety Report 24054453 (Version 1)
Quarter: 2024Q3

REPORT INFORMATION
  Report Type: Spontaneous
  Country: FR (occurrence: FR)
  Receive Date: 20240705
  Receipt Date: 20240705
  Transmission Date: 20241016
  Serious: Yes (Death, Life-Threatening, Hospitalization, Other)
  Sender: RANBAXY
  Company Number: FR-SUN PHARMACEUTICAL INDUSTRIES LTD-2022RR-348403

PATIENT
  Age: 49 Year
  Sex: Male
  Weight: 58 kg

DRUGS (8)
  1. VALACYCLOVIR [Suspect]
     Active Substance: VALACYCLOVIR HYDROCHLORIDE
     Indication: Dermatitis exfoliative generalised
     Route: 065
  2. VALACYCLOVIR [Suspect]
     Active Substance: VALACYCLOVIR HYDROCHLORIDE
     Dosage: UNK
     Route: 065
  3. SULFAMETHOXAZOLE\TRIMETHOPRIM [Suspect]
     Active Substance: SULFAMETHOXAZOLE\TRIMETHOPRIM
     Indication: Dermatitis exfoliative generalised
     Dosage: UNK
     Route: 065
  4. CIPROFLOXACIN [Suspect]
     Active Substance: CIPROFLOXACIN
     Indication: Infection
     Dosage: 500MGX2/DAY
     Route: 048
     Dates: start: 20220627, end: 20220706
  5. POTELIGEO [Suspect]
     Active Substance: MOGAMULIZUMAB-KPKC
     Indication: Cutaneous T-cell lymphoma
     Dosage: UNK
     Route: 040
     Dates: start: 20220525, end: 20220630
  6. BACTRIM [Suspect]
     Active Substance: SULFAMETHOXAZOLE\TRIMETHOPRIM
     Indication: Infection
     Dosage: 1 TAB/DAY
     Route: 048
     Dates: start: 20220526, end: 20220706
  7. VALACYCLOVIR HYDROCHLORIDE [Suspect]
     Active Substance: VALACYCLOVIR HYDROCHLORIDE
     Indication: Eczema herpeticum
     Dosage: 500 MILLIGRAM, DAILY
     Route: 048
     Dates: start: 20220526, end: 20220706
  8. TIAPRIDE HYDROCHLORIDE [Suspect]
     Active Substance: TIAPRIDE HYDROCHLORIDE
     Indication: Agitation
     Dosage: 25 MG IN THE EVENING IF NEEDED
     Route: 065
     Dates: start: 20220525, end: 20220706

REACTIONS (3)
  - Toxic epidermal necrolysis [Not Recovered/Not Resolved]
  - Toxic epidermal necrolysis [Fatal]
  - Infection [Fatal]

NARRATIVE: CASE EVENT DATE: 20220703
